FAERS Safety Report 7519794-1 (Version None)
Quarter: 2011Q2

REPORT INFORMATION
  Report Type: 
  Country: None (occurrence: None)
  Receive Date: 20110524
  Receipt Date: 20110517
  Transmission Date: 20111010
  Serious: Yes (Disabling)
  Sender: FDA-Public Use
  Company Number: GER/UNK/11/0018346

PATIENT
  Age: 70 Year
  Sex: Male
  Weight: 79 kg

DRUGS (12)
  1. DAREPOETIN ALFA (DARBEPOETIN ALFA) [Concomitant]
  2. FUROSEMIDE [Concomitant]
  3. CANDESARTAN CILEXETIL [Concomitant]
  4. ALFACALCIDOL (ALFACALCIDOL) [Concomitant]
  5. AMLODIPINE [Concomitant]
  6. FERROUS SULFATE TAB [Concomitant]
  7. OMEPRAZOLE [Suspect]
     Indication: PRODUCT USED FOR UNKNOWN INDICATION
     Dosage: 20 MG, ORAL
     Route: 048
  8. SIMVASTATIN [Concomitant]
  9. FEBUXOSTAT (FEBUXOSTAT) [Suspect]
     Indication: GOUT
     Dosage: 40 MG, ORAL
     Route: 048
     Dates: start: 20110201, end: 20110309
  10. ATENOLOL (ATNEOLOL) [Concomitant]
  11. DOXAZOSIN MESYLATE [Concomitant]
  12. PHOS-EK (CALCIUM ACETATE) [Concomitant]

REACTIONS (2)
  - CONDITION AGGRAVATED [None]
  - RENAL FAILURE [None]
